FAERS Safety Report 10507770 (Version 2)
Quarter: 2014Q4

REPORT INFORMATION
  Report Type: Spontaneous
  Country: JP (occurrence: JP)
  Receive Date: 20141009
  Receipt Date: 20141022
  Transmission Date: 20150528
  Serious: Yes (Other)
  Sender: FDA-Public Use
  Company Number: JP-ACTAVIS-2014-21793

PATIENT
  Age: 62 Year
  Sex: Female

DRUGS (1)
  1. ZOLEDRONIC ACID (UNKNOWN) [Suspect]
     Active Substance: ZOLEDRONIC ACID
     Indication: BONE CANCER METASTATIC
     Dosage: UNK
     Route: 065
     Dates: start: 201110

REACTIONS (2)
  - Gingival swelling [None]
  - Osteomyelitis [Not Recovered/Not Resolved]

NARRATIVE: CASE EVENT DATE: 201311
